FAERS Safety Report 8024875-2 (Version None)
Quarter: 2012Q1

REPORT INFORMATION
  Report Type: 
  Country: None (occurrence: None)
  Receive Date: 20120105
  Receipt Date: 20120103
  Transmission Date: 20120608
  Serious: No
  Sender: FDA-Public Use
  Company Number: US-B.I. PHARMACEUTICALS,INC./RIDGEFIELD-2012-BP-00158BP

PATIENT
  Age: 69 Year
  Sex: Male

DRUGS (6)
  1. DILTIAZEM HCL [Concomitant]
     Indication: ATRIAL FIBRILLATION
  2. ZETIA [Concomitant]
     Indication: BLOOD CHOLESTEROL INCREASED
  3. MEVACOR [Concomitant]
     Indication: BLOOD CHOLESTEROL INCREASED
  4. LOSARTAN POTASSIUM [Concomitant]
     Indication: HYPERTENSION
  5. XANAX [Concomitant]
     Indication: ANXIETY
  6. PRADAXA [Suspect]
     Indication: ATRIAL FIBRILLATION
     Dosage: 300 MG
     Route: 048

REACTIONS (3)
  - DRY EYE [None]
  - LARYNGITIS [None]
  - DYSPEPSIA [None]
